FAERS Safety Report 8377670-9 (Version None)
Quarter: 2012Q2

REPORT INFORMATION
  Report Type: 
  Country: None (occurrence: None)
  Receive Date: 20120522
  Receipt Date: 20120517
  Transmission Date: 20120825
  Serious: Yes (Hospitalization)
  Sender: FDA-Public Use
  Company Number: US-GLAXOSMITHKLINE-A0763077A

PATIENT
  Age: 63 Year
  Sex: Female
  Weight: 65.9 kg

DRUGS (7)
  1. ATENOLOL [Concomitant]
  2. METFORMIN HCL [Concomitant]
  3. ZOCOR [Concomitant]
  4. AVANDIA [Suspect]
     Indication: TYPE 2 DIABETES MELLITUS
     Dosage: 4MG PER DAY
     Route: 048
     Dates: start: 20040701, end: 20070412
  5. ACTOS [Concomitant]
  6. PREDNISONE [Concomitant]
  7. HYDROCHLOROTHIAZIDE [Concomitant]

REACTIONS (3)
  - CARDIAC DISORDER [None]
  - CHEST PAIN [None]
  - PAIN [None]
